FAERS Safety Report 7122619-X (Version None)
Quarter: 2010Q4

REPORT INFORMATION
  Report Type: 
  Country: None (occurrence: None)
  Receive Date: 20101112
  Receipt Date: 20101104
  Transmission Date: 20110411
  Serious: Yes (Hospitalization)
  Sender: FDA-Public Use
  Company Number: 021568

PATIENT
  Sex: Female
  Weight: 59 kg

DRUGS (5)
  1. KEPPRA [Suspect]
     Indication: EPILEPSY
     Dosage: (ORAL)
     Route: 048
     Dates: start: 20070514
  2. RIVOTRIL (RIVOTRIL) (NOT SPECIFIED) [Suspect]
     Indication: EPILEPSY
     Dosage: (1.2 MG ORAL)
     Route: 048
     Dates: start: 20060410
  3. TEGRETOL [Suspect]
     Indication: EPILEPSY
     Dosage: (650 MG ORAL)
     Route: 048
     Dates: start: 20060828
  4. HYDANTOL (HYDANTOL) [Suspect]
     Indication: EPILEPSY
     Dosage: (300 MG ORAL)
     Route: 048
     Dates: start: 20060828
  5. LAMICTAL [Suspect]
     Indication: EPILEPSY
     Dosage: (200 MG ORAL)
     Route: 048
     Dates: start: 20100602

REACTIONS (2)
  - ANTICONVULSANT DRUG LEVEL DECREASED [None]
  - CONDITION AGGRAVATED [None]
